FAERS Safety Report 6067406-9 (Version None)
Quarter: 2009Q1

REPORT INFORMATION
  Report Type: 
  Country: None (occurrence: None)
  Receive Date: 20090205
  Receipt Date: 20090123
  Transmission Date: 20090719
  Serious: Yes (Other)
  Sender: FDA-Public Use
  Company Number: US-PFIZER INC-2008079393

PATIENT
  Sex: Female

DRUGS (5)
  1. BEXTRA [Suspect]
     Indication: ARTHRALGIA
     Dosage: 20 MG, 1X/DAY
     Dates: start: 20020101
  2. FEMHRT [Concomitant]
     Indication: HORMONE REPLACEMENT THERAPY
     Dosage: UNK
  3. NEXIUM [Concomitant]
     Dosage: 40 MG, 1X/DAY
  4. TOPROL-XL [Concomitant]
     Indication: HYPERTENSION
     Dosage: 25 MG, 2X/DAY
  5. ACCUPRIL [Concomitant]
     Indication: HYPERTENSION
     Dosage: 10 MG, 1X/DAY

REACTIONS (2)
  - CARDIOVASCULAR DISORDER [None]
  - MYOCARDIAL INFARCTION [None]
